FAERS Safety Report 10006777 (Version 1)
Quarter: 2014Q1

REPORT INFORMATION
  Report Type: Spontaneous
  Country: US (occurrence: US)
  Receive Date: 20140313
  Receipt Date: 20140313
  Transmission Date: 20141002
  Serious: No
  Sender: FDA-Public Use
  Company Number: US-GILEAD-2012-0065480

PATIENT
  Sex: Female

DRUGS (3)
  1. LETAIRIS [Suspect]
     Indication: COR PULMONALE CHRONIC
     Dosage: 5 MG, QD
     Route: 048
     Dates: start: 20120711, end: 2012
  2. LETAIRIS [Suspect]
     Dosage: 10 MG, BID
     Route: 048
     Dates: start: 2012
  3. REVATIO [Concomitant]

REACTIONS (1)
  - Dyspnoea [Not Recovered/Not Resolved]
